FAERS Safety Report 18888256 (Version 2)
Quarter: 2021Q1

REPORT INFORMATION
  Report Type: Spontaneous
  Country: US (occurrence: US)
  Receive Date: 20210212
  Receipt Date: 20210226
  Transmission Date: 20210420
  Serious: Yes (Life-Threatening, Hospitalization, Disabling, Other)
  Sender: FDA-Public Use
  Company Number: US-009507513-2102USA003667

PATIENT
  Age: 66 Year
  Sex: Female
  Weight: 88.44 kg

DRUGS (5)
  1. DULOXETINE HYDROCHLORIDE. [Concomitant]
     Active Substance: DULOXETINE HYDROCHLORIDE
  2. AMLODIPINE [Concomitant]
     Active Substance: AMLODIPINE BESYLATE
     Indication: HYPERTENSION
  3. BRIDION [Suspect]
     Active Substance: SUGAMMADEX
     Indication: ANAESTHESIA REVERSAL
     Dosage: UNK
     Route: 042
     Dates: start: 20181101
  4. OMEPRAZOLE. [Concomitant]
     Active Substance: OMEPRAZOLE
  5. MORPHINE [Suspect]
     Active Substance: MORPHINE
     Indication: ANAESTHESIA REVERSAL
     Dosage: UNK
     Dates: start: 20181101

REACTIONS (3)
  - Endotracheal intubation [Recovered/Resolved]
  - Anaphylactic reaction [Recovered/Resolved]
  - Coma [Recovered/Resolved]

NARRATIVE: CASE EVENT DATE: 20181101
